FAERS Safety Report 4333064-4 (Version None)
Quarter: 2004Q2

REPORT INFORMATION
  Report Type: 
  Country: None (occurrence: None)
  Receive Date: 20040401
  Receipt Date: 20040317
  Transmission Date: 20050107
  Serious: Yes (Hospitalization)
  Sender: FDA-Public Use
  Company Number: S04-USA-00400-01

PATIENT
  Age: 18 Year
  Sex: Female
  Weight: 58.9676 kg

DRUGS (6)
  1. LEXAPRO [Suspect]
     Indication: BIPOLAR I DISORDER
     Dosage: 40 MG QD PO
     Route: 048
     Dates: start: 20030701, end: 20040210
  2. LEXAPRO [Suspect]
     Indication: BIPOLAR I DISORDER
     Dosage: 20 MG QD PO
     Route: 048
     Dates: start: 20040122
  3. LEXAPRO [Suspect]
     Indication: BIPOLAR I DISORDER
     Dosage: 80 MG PRN PO
     Route: 048
  4. ESKALITH [Concomitant]
  5. ABILIFY [Concomitant]
  6. ATIVAN [Concomitant]

REACTIONS (3)
  - DEPRESSION SUICIDAL [None]
  - HOMICIDAL IDEATION [None]
  - PARANOIA [None]
